FAERS Safety Report 14783233 (Version 1)
Quarter: 2018Q2

REPORT INFORMATION
  Report Type: Spontaneous
  Country: GB (occurrence: GB)
  Receive Date: 20180420
  Receipt Date: 20180420
  Transmission Date: 20180711
  Serious: Yes (Other)
  Sender: FDA-Public Use
  Company Number: GB-ABBVIE-18P-167-2327596-00

PATIENT
  Sex: Female

DRUGS (1)
  1. PROSTAP SR DCS [Suspect]
     Active Substance: LEUPROLIDE ACETATE
     Indication: ENDOMETRIOSIS
     Route: 065

REACTIONS (19)
  - Knee arthroplasty [Unknown]
  - Osteoporosis [Unknown]
  - Feeling cold [Unknown]
  - Chronic fatigue syndrome [Unknown]
  - Headache [Unknown]
  - Cognitive disorder [Unknown]
  - Insomnia [Unknown]
  - Alopecia [Unknown]
  - Back pain [Unknown]
  - Paraesthesia [Unknown]
  - Pruritus [Unknown]
  - Loss of libido [Unknown]
  - Anxiety [Unknown]
  - Weight increased [Unknown]
  - Irritable bowel syndrome [Unknown]
  - Myalgia [Unknown]
  - Asthenia [Unknown]
  - Mood swings [Unknown]
  - Suicidal ideation [Unknown]
